APPROVED DRUG PRODUCT: CARBIDOPA AND LEVODOPA
Active Ingredient: CARBIDOPA; LEVODOPA
Strength: 10MG;100MG
Dosage Form/Route: TABLET;ORAL
Application: A074260 | Product #001 | TE Code: AB
Applicant: ACTAVIS ELIZABETH LLC
Approved: Sep 3, 1993 | RLD: No | RS: No | Type: RX